FAERS Safety Report 9347323 (Version 6)
Quarter: 2017Q3

REPORT INFORMATION
  Report Type: Report from Study
  Country: JP (occurrence: JP)
  Receive Date: 20130613
  Receipt Date: 20170811
  Transmission Date: 20171128
  Serious: Yes (Life-Threatening, Disabling, Other)
  Sender: FDA-Public Use
  Company Number: JP-009507513-0112USA02604

PATIENT
  Age: 24 Year
  Sex: Male

DRUGS (25)
  1. NORVIR [Suspect]
     Active Substance: RITONAVIR
     Indication: HIV INFECTION
     Dosage: 800 MG, QD
     Route: 048
     Dates: start: 19991101, end: 20001224
  2. ZIAGEN [Suspect]
     Active Substance: ABACAVIR SULFATE
     Dosage: 600 MG, QD
     Route: 048
     Dates: start: 20011020, end: 20011027
  3. STOCRIN TABLETS 200MG [Suspect]
     Active Substance: EFAVIRENZ
     Indication: HIV INFECTION
     Dosage: 600 MG, QD
     Route: 048
     Dates: start: 20000724, end: 20000725
  4. VIDEX [Suspect]
     Active Substance: DIDANOSINE
     Indication: HIV INFECTION
     Dosage: 125 MG, BID
     Route: 048
     Dates: start: 19941219, end: 19970307
  5. KALETRA [Suspect]
     Active Substance: LOPINAVIR\RITONAVIR
     Indication: HIV INFECTION
     Dosage: 6 DF, QD
     Route: 048
     Dates: start: 20001225, end: 20040424
  6. ZERIT [Suspect]
     Active Substance: STAVUDINE
     Dosage: 40 MG, BID
     Route: 048
     Dates: start: 19981109, end: 19990619
  7. EPIVIR [Suspect]
     Active Substance: LAMIVUDINE
     Indication: HIV INFECTION
     Dosage: 300 MG, QD
     Route: 048
     Dates: start: 20040515, end: 20080919
  8. VIDEX [Suspect]
     Active Substance: DIDANOSINE
     Dosage: 300 MG, QD
     Route: 048
     Dates: start: 19970307, end: 20010721
  9. ZERIT [Suspect]
     Active Substance: STAVUDINE
     Dosage: 80 MG, QD
     Route: 048
     Dates: start: 20001225, end: 20011020
  10. STOCRIN TABLETS 200MG [Suspect]
     Active Substance: EFAVIRENZ
     Dosage: 600 MG, QD
     Route: 048
     Dates: start: 20000925, end: 20001002
  11. NORVIR [Suspect]
     Active Substance: RITONAVIR
     Dosage: 200 MG, UNK
     Route: 048
     Dates: start: 20110618
  12. ZIAGEN [Suspect]
     Active Substance: ABACAVIR SULFATE
     Indication: PRODUCT USED FOR UNKNOWN INDICATION
     Dosage: 600 MG, QD
     Route: 048
     Dates: start: 20000724, end: 20000725
  13. ZERIT [Suspect]
     Active Substance: STAVUDINE
     Indication: HIV INFECTION
     Dosage: 30 MG, BID
     Route: 048
     Dates: start: 19970825, end: 19980227
  14. VIDEX [Suspect]
     Active Substance: DIDANOSINE
     Dosage: 400 MG, QD
     Route: 048
     Dates: start: 20010721, end: 20040514
  15. NORVIR [Suspect]
     Active Substance: RITONAVIR
     Dosage: 400 MG, BID
     Route: 048
     Dates: start: 19990619, end: 19991031
  16. CRIXIVAN [Suspect]
     Active Substance: INDINAVIR SULFATE
     Indication: HIV INFECTION
     Dosage: 800 MG, QD
     Route: 048
     Dates: start: 20000318, end: 20000524
  17. VIDEX EC [Suspect]
     Active Substance: DIDANOSINE
     Indication: HIV INFECTION
     Dosage: 400 MG, QD
     Route: 048
     Dates: start: 20010721, end: 20040514
  18. INVIRASE [Suspect]
     Active Substance: SAQUINAVIR MESYLATE
     Indication: HIV INFECTION
     Dosage: 400 MG, BID
     Route: 048
     Dates: start: 19990619, end: 20000318
  19. INVIRASE [Suspect]
     Active Substance: SAQUINAVIR MESYLATE
     Dosage: 800 MG, QD
     Route: 048
     Dates: start: 20000524, end: 20001224
  20. NORVIR [Suspect]
     Active Substance: RITONAVIR
     Dosage: 200 MG, QD
     Route: 048
     Dates: start: 20080920, end: 20110617
  21. ZERIT [Suspect]
     Active Substance: STAVUDINE
     Dosage: 40 MG, BID
     Route: 048
     Dates: start: 19980227, end: 19980803
  22. ZERIT [Suspect]
     Active Substance: STAVUDINE
     Dosage: 30 MG, BID
     Route: 048
     Dates: start: 19980803, end: 19981109
  23. NORVIR [Suspect]
     Active Substance: RITONAVIR
     Dosage: 100 MG, QD
     Route: 048
     Dates: start: 20040425, end: 20080919
  24. ZIAGEN [Suspect]
     Active Substance: ABACAVIR SULFATE
     Dosage: UNK
     Dates: start: 20000925
  25. ANTIHEMOPHILIC FACTOR (AS DRUG) [Concomitant]
     Indication: HAEMARTHROSIS
     Dosage: 9-10 TIMES/MONTH.1 THOUSAND MILLION UNIT
     Route: 042
     Dates: start: 19991101, end: 20120401

REACTIONS (5)
  - Palpitations [Recovering/Resolving]
  - Pulmonary hypertension [Not Recovered/Not Resolved]
  - Dizziness [Recovering/Resolving]
  - Palpitations [Recovering/Resolving]
  - Palpitations [Recovering/Resolving]

NARRATIVE: CASE EVENT DATE: 20000318
